FAERS Safety Report 5254131-7 (Version None)
Quarter: 2007Q1

REPORT INFORMATION
  Report Type: 
  Country: None (occurrence: None)
  Receive Date: 20070302
  Receipt Date: 20070222
  Transmission Date: 20070707
  Serious: Yes (Hospitalization)
  Sender: FDA-Public Use
  Company Number: GB-ROCHE-484832

PATIENT
  Age: 45 Year
  Sex: Female
  Weight: 85 kg

DRUGS (4)
  1. XENICAL [Suspect]
     Indication: OBESITY
     Route: 048
     Dates: start: 20060810
  2. XENICAL [Suspect]
     Route: 048
     Dates: start: 20061215
  3. RAMIPRIL [Suspect]
     Indication: BLOOD PRESSURE INCREASED
     Route: 065
  4. LEVOTHYROXINE SODIUM [Concomitant]
     Indication: HYPOTHYROIDISM
     Route: 048
     Dates: end: 20060615

REACTIONS (2)
  - BLOOD PRESSURE INCREASED [None]
  - HYPERSENSITIVITY [None]
